FAERS Safety Report 16129775 (Version 1)
Quarter: 2019Q1

REPORT INFORMATION
  Report Type: Spontaneous
  Country: US (occurrence: US)
  Receive Date: 20190328
  Receipt Date: 20190328
  Transmission Date: 20190418
  Serious: No
  Sender: FDA-Public Use
  Company Number: US-ASTRAZENECA-2019SE19658

PATIENT
  Age: 23986 Day
  Sex: Male
  Weight: 77.1 kg

DRUGS (9)
  1. ACTOSMET [Concomitant]
     Dosage: 15/500 BID
  2. PEPCID [Concomitant]
     Active Substance: FAMOTIDINE
  3. VITAMIN D [Concomitant]
     Active Substance: CHOLECALCIFEROL
  4. FENOFIBRATE. [Concomitant]
     Active Substance: FENOFIBRATE
  5. BABY ASPIRIN [Concomitant]
     Active Substance: ASPIRIN
     Indication: HAEMOGLOBIN INCREASED
     Route: 048
     Dates: start: 2018
  6. JANUVIA [Concomitant]
     Active Substance: SITAGLIPTIN PHOSPHATE
  7. BYDUREON BCISE [Suspect]
     Active Substance: EXENATIDE
     Indication: TYPE 2 DIABETES MELLITUS
     Dosage: MG, ONCE A WEEK
     Route: 058
     Dates: start: 20190130
  8. BYDUREON BCISE [Suspect]
     Active Substance: EXENATIDE
     Indication: TYPE 2 DIABETES MELLITUS
     Dosage: MG, ONCE A WEEK
     Route: 058
     Dates: start: 20190130
  9. LIVALO [Concomitant]
     Active Substance: PITAVASTATIN CALCIUM

REACTIONS (2)
  - Injection site haemorrhage [Recovered/Resolved]
  - Injection site pain [Recovered/Resolved]

NARRATIVE: CASE EVENT DATE: 20190130
